FAERS Safety Report 16552095 (Version 2)
Quarter: 2019Q3

REPORT INFORMATION
  Report Type: Spontaneous
  Country: DE (occurrence: DE)
  Receive Date: 20190710
  Receipt Date: 20190710
  Transmission Date: 20191004
  Serious: Yes (Life-Threatening, Hospitalization)
  Sender: FDA-Public Use
  Company Number: PHHY2019DE158551

PATIENT
  Age: 32 Year
  Sex: Male
  Weight: 94 kg

DRUGS (3)
  1. DICLOFENAC [Suspect]
     Active Substance: DICLOFENAC
     Indication: PRODUCT USED FOR UNKNOWN INDICATION
     Dosage: NK MG, BEDARFSMEDIKATION BEI FIEBERHAFTEM INFEKT, TABLETTEN)
     Route: 048
  2. PARACETAMOL [Suspect]
     Active Substance: ACETAMINOPHEN
     Indication: PRODUCT USED FOR UNKNOWN INDICATION
     Dosage: NK MG, BEDARFSMEDIKATION BEI FIEBERHAFTEM INFEKT, TABLETTEN
     Route: 048
  3. BISOPROLOL [Concomitant]
     Active Substance: BISOPROLOL
     Indication: PRODUCT USED FOR UNKNOWN INDICATION
     Dosage: 10 MG, UNK (1-0-0.5-0)
     Route: 048

REACTIONS (3)
  - Liver function test abnormal [Unknown]
  - Jaundice [Unknown]
  - Product prescribing error [Unknown]
